FAERS Safety Report 24214128 (Version 1)
Quarter: 2024Q3

REPORT INFORMATION
  Report Type: Spontaneous
  Country: PL (occurrence: PL)
  Receive Date: 20240815
  Receipt Date: 20240815
  Transmission Date: 20241017
  Serious: Yes (Hospitalization, Congenital Anomaly)
  Sender: TEVA
  Company Number: None

PATIENT
  Age: 77 Year
  Sex: Female
  Weight: 67 kg

DRUGS (6)
  1. CYCLOSPORINE [Suspect]
     Active Substance: CYCLOSPORINE
     Indication: Psoriasis
     Dosage: DOSAGE 2-0-0
     Route: 065
     Dates: start: 20240202, end: 20240216
  2. OMEPRAZOLE [Concomitant]
     Active Substance: OMEPRAZOLE
     Indication: Product used for unknown indication
     Dosage: DOSAGE 1-0-0
     Route: 065
  3. ACTELSAR [Concomitant]
     Indication: Product used for unknown indication
     Dosage: DOSAGE 0-0-1
     Route: 065
  4. ROSUVASTATIN CALCIUM [Concomitant]
     Active Substance: ROSUVASTATIN CALCIUM
     Indication: Product used for unknown indication
     Dosage: DOSAGE 0-0-1
     Route: 065
  5. ACARD [Concomitant]
     Indication: Product used for unknown indication
     Dosage: DOSAGE 1-0-0
     Route: 048
  6. DIURED [Concomitant]
     Indication: Product used for unknown indication
     Dosage: DOSAGE 1-0-0
     Route: 065

REACTIONS (5)
  - Laryngeal disorder [Unknown]
  - Dysphonia [Unknown]
  - Headache [Unknown]
  - Dysphagia [Unknown]
  - Dizziness postural [Unknown]
